FAERS Safety Report 9432608 (Version 1)
Quarter: 2013Q3

REPORT INFORMATION
  Report Type: Spontaneous
  Country: US (occurrence: US)
  Receive Date: 20130731
  Receipt Date: 20130731
  Transmission Date: 20140515
  Serious: No
  Sender: FDA-Public Use
  Company Number: US-BAYER-2013-091324

PATIENT
  Age: 73 Year
  Sex: Male
  Weight: 82 kg

DRUGS (9)
  1. ALEVE TABLET [Suspect]
     Dosage: UNK DF,UNK
     Route: 048
  2. ASPIRIN [Concomitant]
  3. LAMICTAL [Concomitant]
  4. OXYBUTYNIN [Concomitant]
  5. GABAPENTIN [Concomitant]
  6. OMEPRAZOLE [Concomitant]
  7. CEVIMELINE [Concomitant]
  8. LEVOTHYROXINE [Concomitant]
  9. CLONAZEPAM [Concomitant]

REACTIONS (4)
  - Dizziness [Recovered/Resolved]
  - Dyspepsia [Recovered/Resolved]
  - Extra dose administered [None]
  - Nausea [Recovered/Resolved]
